FAERS Safety Report 21525140 (Version 3)
Quarter: 2022Q4

REPORT INFORMATION
  Report Type: Spontaneous
  Country: CZ (occurrence: CZ)
  Receive Date: 20221030
  Receipt Date: 20221217
  Transmission Date: 20230113
  Serious: Yes (Other)
  Sender: FDA-Public Use
  Company Number: CZ-HALEON-CZCH2022EME038325

PATIENT
  Age: 12 Year
  Sex: Female

DRUGS (7)
  1. IBUPROFEN [Suspect]
     Active Substance: IBUPROFEN
     Indication: Seasonal allergy
     Dosage: UNK
     Route: 065
  2. ACETAMINOPHEN [Suspect]
     Active Substance: ACETAMINOPHEN
     Indication: Seasonal allergy
     Dosage: UNK
     Route: 065
  3. DIMETHINDENE MALEATE [Suspect]
     Active Substance: DIMETHINDENE MALEATE
     Indication: Seasonal allergy
     Dosage: UNK
     Route: 065
  4. MONTELUKAST [Suspect]
     Active Substance: MONTELUKAST SODIUM
     Indication: Seasonal allergy
     Dosage: 0.5 DOSAGE FORM, ONCE A DAY (HALF TABLET PER DAY )
     Route: 048
  5. DIMETHINDENE [Suspect]
     Active Substance: DIMETHINDENE
     Indication: Seasonal allergy
     Dosage: UNK
     Route: 065
  6. CETIRIZINE [Suspect]
     Active Substance: CETIRIZINE HYDROCHLORIDE
     Indication: Seasonal allergy
     Dosage: UNK
     Route: 065
  7. ACETAMINOPHEN [Suspect]
     Active Substance: ACETAMINOPHEN
     Indication: Seasonal allergy
     Dosage: UNK
     Route: 065

REACTIONS (4)
  - Hallucination [Recovered/Resolved]
  - Nightmare [Recovered/Resolved]
  - Depression [Recovered/Resolved]
  - Anxiety [Recovered/Resolved]
